FAERS Safety Report 18489542 (Version 6)
Quarter: 2020Q4

REPORT INFORMATION
  Report Type: Other
  Country: CZ (occurrence: CZ)
  Receive Date: 20201111
  Receipt Date: 20201231
  Transmission Date: 20210114
  Serious: Yes (Hospitalization, Other)
  Sender: FDA-Public Use
  Company Number: CZ-STRIDES ARCOLAB LIMITED-2020SP013579

PATIENT
  Age: 96 Year
  Sex: Female

DRUGS (48)
  1. ZOLPIDEM [Suspect]
     Active Substance: ZOLPIDEM TARTRATE
     Indication: DRUG ABUSE
     Dosage: UNK
     Route: 065
  2. ZOLPIDEM [Suspect]
     Active Substance: ZOLPIDEM TARTRATE
     Dosage: UNK
     Route: 065
  3. PREDNISOLONE. [Suspect]
     Active Substance: PREDNISOLONE
     Dosage: UNK (DOSE REDUCED)
     Route: 065
  4. MELOXICAM. [Suspect]
     Active Substance: MELOXICAM
     Indication: POST HERPETIC NEURALGIA
     Dosage: 1 DOSAGE FORM, ONCE A WEEK (TABLET)
     Route: 065
     Dates: start: 2015
  5. TEZEO [Suspect]
     Active Substance: TELMISARTAN
     Indication: PRODUCT USED FOR UNKNOWN INDICATION
     Dosage: 1 DOSAGE FORM (1DF=80/12.5 MG) (PER DAY)
     Route: 065
  6. GUTTALAX [SODIUM PICOSULFATE] [Suspect]
     Active Substance: SODIUM PICOSULFATE
     Indication: CONSTIPATION
     Dosage: 1 DOSAGE FORM (1DF=10-20 GUTTES)
     Route: 065
  7. PANADOL [Suspect]
     Active Substance: ACETAMINOPHEN
     Indication: PAIN
     Dosage: 1.5 DF (3-4 TIMES A DAY)
     Route: 065
  8. MAGNESIUM ASPARTATE [Suspect]
     Active Substance: MAGNESIUM ASPARTATE
     Indication: PRODUCT USED FOR UNKNOWN INDICATION
     Dosage: UNK
     Route: 065
  9. AMLODIPINE [Suspect]
     Active Substance: AMLODIPINE BESYLATE
     Indication: PRODUCT USED FOR UNKNOWN INDICATION
     Dosage: 5 MILLIGRAM, QD (TABLET)
     Route: 065
  10. BETALOC [METOPROLOL TARTRATE] [Suspect]
     Active Substance: METOPROLOL TARTRATE
     Indication: PRODUCT USED FOR UNKNOWN INDICATION
     Dosage: 25 MILLIGRAM, QD
     Route: 065
  11. ACIDUM FOLICUM [Suspect]
     Active Substance: FOLIC ACID
     Dosage: UNK (DOSE REDUCED)
     Route: 065
  12. BETALOC ZOK [Suspect]
     Active Substance: METOPROLOL SUCCINATE
     Indication: PRODUCT USED FOR UNKNOWN INDICATION
     Dosage: 25 MILLIGRAM, QD
     Route: 065
  13. CARDILAN [NICOFURANOSE] [Suspect]
     Active Substance: NICOFURANOSE
     Dosage: UNK (DOSE REDUCED)
     Route: 065
  14. METHOTREXATE SODIUM. [Suspect]
     Active Substance: METHOTREXATE SODIUM
     Indication: RHEUMATOID ARTHRITIS
     Dosage: 10 MILLIGRAM, ONCE A WEEK
     Route: 065
     Dates: start: 2010
  15. NOVALGIN [CAFFEINE;PARACETAMOL;PROPYPHENAZONE] [Suspect]
     Active Substance: ACETAMINOPHEN\CAFFEINE\PROPYPHENAZONE
     Dosage: UNK (DOSE REDUCED)
     Route: 065
  16. CALCICHEW-D3 [Suspect]
     Active Substance: CALCIUM\CHOLECALCIFEROL
     Indication: PRODUCT USED FOR UNKNOWN INDICATION
     Dosage: UNK UNK, QD
     Route: 065
  17. OXAZEPAM. [Suspect]
     Active Substance: OXAZEPAM
     Indication: DRUG ABUSE
     Dosage: UNK
     Route: 065
  18. CORDARONE [Suspect]
     Active Substance: AMIODARONE HYDROCHLORIDE
     Dosage: UNK (DOSE REDUCED)
     Route: 065
  19. GUTTALAX [SODIUM PICOSULFATE] [Suspect]
     Active Substance: SODIUM PICOSULFATE
     Dosage: 1 DOSAGE FORM (DOSE REDUCED)
     Route: 065
  20. ROSUCARD [Suspect]
     Active Substance: ROSUVASTATIN CALCIUM
     Dosage: UNK (DOSE REDUCED)
     Route: 065
  21. EUTHYROX [Suspect]
     Active Substance: LEVOTHYROXINE SODIUM
     Dosage: 100 MICROGRAM, QD
     Route: 065
  22. IBUPROFEN. [Suspect]
     Active Substance: IBUPROFEN
     Indication: PAIN
     Dosage: UNK
     Route: 065
  23. PREDNISOLONE. [Suspect]
     Active Substance: PREDNISOLONE
     Indication: PRODUCT USED FOR UNKNOWN INDICATION
     Dosage: UNK UNK, QD
     Route: 065
  24. TRAMADOL. [Suspect]
     Active Substance: TRAMADOL
     Indication: PRODUCT USED FOR UNKNOWN INDICATION
     Dosage: UNK
     Route: 065
  25. BETALOC [METOPROLOL TARTRATE] [Suspect]
     Active Substance: METOPROLOL TARTRATE
     Dosage: UNK (DOSE REDUCED)
     Route: 065
  26. METAMIZOLE [Suspect]
     Active Substance: METAMIZOLE
     Indication: POST HERPETIC NEURALGIA
     Dosage: UNK
     Route: 065
  27. TEZEO [Suspect]
     Active Substance: TELMISARTAN
     Dosage: UNK (DOSE REDUCED)
     Route: 065
  28. NOVALGIN [CAFFEINE;PARACETAMOL;PROPYPHENAZONE] [Suspect]
     Active Substance: ACETAMINOPHEN\CAFFEINE\PROPYPHENAZONE
     Indication: PRODUCT USED FOR UNKNOWN INDICATION
     Dosage: 500 MILLIGRAM, EVERY 12 HRS
     Route: 065
  29. BETALOC ZOK [Suspect]
     Active Substance: METOPROLOL SUCCINATE
     Dosage: UNK (DOSE REDUCED)
     Route: 065
  30. CALCICHEW-D3 [Suspect]
     Active Substance: CALCIUM\CHOLECALCIFEROL
     Dosage: UNK (DOSE REDUCED)
     Route: 065
  31. ACIDUM FOLICUM [Suspect]
     Active Substance: FOLIC ACID
     Indication: PRODUCT USED FOR UNKNOWN INDICATION
     Dosage: UNK UNK, QD
     Route: 065
  32. ELIQUIS [Suspect]
     Active Substance: APIXABAN
     Indication: PRODUCT USED FOR UNKNOWN INDICATION
     Dosage: 5 MILLIGRAM (PER DAY)
     Route: 065
  33. DUROGESIC [Suspect]
     Active Substance: FENTANYL
     Indication: POST HERPETIC NEURALGIA
     Dosage: 25 MICROGRAM  Q72H
     Route: 065
     Dates: start: 2015
  34. POTASSIUM ASPARTATE [Suspect]
     Active Substance: POTASSIUM ASPARTATE
     Indication: PRODUCT USED FOR UNKNOWN INDICATION
     Dosage: UNK
     Route: 065
  35. CARDILAN [MAGNESIUM ASPARTATE;POTASSIUM ASPARTATE] [Suspect]
     Active Substance: MAGNESIUM ASPARTATE\POTASSIUM ASPARTATE
     Indication: PRODUCT USED FOR UNKNOWN INDICATION
     Dosage: UNK
     Route: 065
  36. MELOXICAM. [Suspect]
     Active Substance: MELOXICAM
     Dosage: UNK (DOSE REDUCED)
     Route: 065
  37. METAMIZOLE [Suspect]
     Active Substance: METAMIZOLE
     Dosage: UNK (DOSE REDUCED)
     Route: 065
  38. ELIQUIS [Suspect]
     Active Substance: APIXABAN
     Dosage: UNK (DOSE REDUCED)
     Route: 065
  39. CARDILAN [NICOFURANOSE] [Suspect]
     Active Substance: NICOFURANOSE
     Indication: PRODUCT USED FOR UNKNOWN INDICATION
     Dosage: UNK UNK, QD
     Route: 065
  40. CONDROSULF [Suspect]
     Active Substance: SODIUM CHONDROITIN SULFATE
     Indication: PRODUCT USED FOR UNKNOWN INDICATION
     Dosage: 800 MILLIGRAM, QD
     Route: 065
  41. CONDROSULF [Suspect]
     Active Substance: SODIUM CHONDROITIN SULFATE
     Dosage: UNK (DOSE REDUCED)
     Route: 065
  42. EUTHYROX [Suspect]
     Active Substance: LEVOTHYROXINE SODIUM
     Indication: AUTOIMMUNE THYROIDITIS
     Dosage: 100 MICROGRAM, QD
     Route: 065
  43. DUROGESIC [Suspect]
     Active Substance: FENTANYL
     Dosage: UNK (DOSE REDUCED)
     Route: 065
  44. AMLODIPINE [Suspect]
     Active Substance: AMLODIPINE BESYLATE
     Dosage: UNK (DOSE REDUCED)
     Route: 065
  45. CORDARONE [Suspect]
     Active Substance: AMIODARONE HYDROCHLORIDE
     Indication: PRODUCT USED FOR UNKNOWN INDICATION
     Dosage: 200 MILLIGRAM, QD
     Route: 065
  46. ROSUCARD [Suspect]
     Active Substance: ROSUVASTATIN CALCIUM
     Indication: PRODUCT USED FOR UNKNOWN INDICATION
     Dosage: 20 MILLIGRAM, QD
     Route: 065
  47. CONTROLOC [Suspect]
     Active Substance: PANTOPRAZOLE SODIUM
     Indication: PRODUCT USED FOR UNKNOWN INDICATION
     Dosage: 20 MILLIGRAM, QD
     Route: 065
  48. METHOTREXATE SODIUM. [Suspect]
     Active Substance: METHOTREXATE SODIUM
     Dosage: UNK (DOSE REDUCED)
     Route: 065

REACTIONS (37)
  - Delirium [Recovered/Resolved]
  - Liver function test increased [Recovered/Resolved]
  - Hyponatraemia [Recovered/Resolved]
  - Oxygen saturation decreased [Recovered/Resolved]
  - Vertigo [Recovered/Resolved]
  - Deafness [Recovered/Resolved]
  - Medication error [Recovered/Resolved]
  - Head discomfort [Recovered/Resolved]
  - Listless [Recovered/Resolved]
  - Drug abuse [Unknown]
  - Fall [Recovered/Resolved]
  - Nausea [Recovered/Resolved]
  - Hypertension [Recovered/Resolved]
  - Condition aggravated [Recovered/Resolved]
  - Self-medication [Recovered/Resolved]
  - Fracture [Recovered/Resolved]
  - Restlessness [Recovered/Resolved]
  - Dizziness [Recovered/Resolved]
  - Foreign body [Recovered/Resolved]
  - Off label use [Unknown]
  - Cognitive disorder [Recovered/Resolved]
  - Pelvic fracture [Recovered/Resolved]
  - Concomitant disease aggravated [Recovered/Resolved]
  - Sleep disorder [Recovered/Resolved]
  - Prescription drug used without a prescription [Unknown]
  - Urinary retention [Recovered/Resolved]
  - Anxiety [Recovered/Resolved]
  - Contusion [Recovered/Resolved]
  - Atrial fibrillation [Recovered/Resolved]
  - Hypokalaemia [Recovered/Resolved]
  - Confusional state [Recovered/Resolved]
  - Apathy [Recovered/Resolved]
  - Hypoacusis [Recovered/Resolved]
  - Intentional product misuse [Unknown]
  - Poor quality sleep [Recovered/Resolved]
  - Overdose [Recovered/Resolved]
  - Product use issue [Recovered/Resolved]
